FAERS Safety Report 13950751 (Version 1)
Quarter: 2017Q3

REPORT INFORMATION
  Report Type: Spontaneous
  Country: US (occurrence: US)
  Receive Date: 20170908
  Receipt Date: 20170908
  Transmission Date: 20171128
  Serious: No
  Sender: FDA-Public Use
  Company Number: US-ROCHE-1131257

PATIENT
  Age: 26 Year
  Sex: Male

DRUGS (2)
  1. RITUXAN [Suspect]
     Active Substance: RITUXIMAB
     Indication: OFF LABEL USE
  2. RITUXAN [Suspect]
     Active Substance: RITUXIMAB
     Indication: HODGKIN^S DISEASE
     Route: 065

REACTIONS (8)
  - Peripheral swelling [Unknown]
  - Dyspnoea [Unknown]
  - Jaundice [Unknown]
  - Decreased appetite [Unknown]
  - Lymphadenopathy [Unknown]
  - Chest discomfort [Unknown]
  - Pyrexia [Unknown]
  - Skin papilloma [Unknown]

NARRATIVE: CASE EVENT DATE: 20010813
